FAERS Safety Report 11553517 (Version 2)
Quarter: 2016Q2

REPORT INFORMATION
  Report Type: Spontaneous
  Country: US (occurrence: US)
  Receive Date: 20150925
  Receipt Date: 20160517
  Transmission Date: 20160815
  Serious: Yes (Hospitalization, Other)
  Sender: FDA-Public Use
  Company Number: US-PFIZER INC-2010118093

PATIENT
  Age: 19 Year
  Sex: Male

DRUGS (1)
  1. IBUPROFEN. [Suspect]
     Active Substance: IBUPROFEN
     Dosage: 90 G, SINGLE
     Route: 048

REACTIONS (5)
  - Intentional overdose [Recovering/Resolving]
  - Renal tubular necrosis [Recovering/Resolving]
  - Coma [Recovering/Resolving]
  - Lactic acidosis [Recovering/Resolving]
  - Polyuria [Recovering/Resolving]
